FAERS Safety Report 10907483 (Version 1)
Quarter: 2015Q1

REPORT INFORMATION
  Report Type: Spontaneous
  Country: AT (occurrence: AT)
  Receive Date: 20150312
  Receipt Date: 20150312
  Transmission Date: 20150721
  Serious: Yes (Other)
  Sender: FDA-Public Use
  Company Number: AT-DSJP-DSE-2015-107303

PATIENT

DRUGS (1)
  1. MENCORD 40 MG [Suspect]
     Active Substance: OLMESARTAN MEDOXOMIL
     Indication: HYPERTENSION
     Dosage: 40 MG, QD
     Route: 048
     Dates: start: 2008, end: 2014

REACTIONS (2)
  - Weight decreased [None]
  - Coeliac disease [Recovered/Resolved]

NARRATIVE: CASE EVENT DATE: 20131201
